FAERS Safety Report 6244320-7 (Version None)
Quarter: 2009Q2

REPORT INFORMATION
  Report Type: 
  Country: None (occurrence: None)
  Receive Date: 20090625
  Receipt Date: 20090610
  Transmission Date: 20091009
  Serious: Yes (Other)
  Sender: FDA-Public Use
  Company Number: US-ROCHE-638488

PATIENT
  Age: 23 Year
  Sex: Male

DRUGS (7)
  1. MYCOPHENOLATE MOFETIL [Suspect]
     Indication: TRANSPLANT
     Dosage: 1-2G/DAY
     Route: 065
  2. PROGRAF [Suspect]
     Indication: TRANSPLANT
     Dosage: TROUGH LEVELS 12-20 NG/ML
     Route: 065
  3. PROGRAF [Suspect]
     Dosage: TROUGH LEVELS 8-12 NG/ML
     Route: 065
  4. PROGRAF [Suspect]
     Dosage: TROUGH LEVELS 5-12 NG/ML
     Route: 065
  5. CAMPATH-1 [Suspect]
     Indication: DRUG USE FOR UNKNOWN INDICATION
     Route: 065
  6. METHYLPREDNISOLONE [Suspect]
     Indication: TRANSPLANT
     Route: 065
  7. PREDNISOLONE [Suspect]
     Indication: TRANSPLANT
     Dosage: STEROIDS SLOWLY WEANED DURING FIRST YEAR TO MAINTENANCE DOSE OF 5MG PER DAY
     Route: 065

REACTIONS (3)
  - CYTOMEGALOVIRUS INFECTION [None]
  - HYPERTENSION [None]
  - TRANSPLANT REJECTION [None]
